FAERS Safety Report 26053444 (Version 1)
Quarter: 2025Q4

REPORT INFORMATION
  Report Type: Spontaneous
  Country: US (occurrence: None)
  Receive Date: 20251114
  Receipt Date: 20251114
  Transmission Date: 20260118
  Serious: No
  Sender: FDA-CTU
  Company Number: None

PATIENT
  Sex: Female

DRUGS (1)
  1. ENBREL [Suspect]
     Active Substance: ETANERCEPT
     Indication: Rheumatoid arthritis
     Dosage: 50 MG/ML ONCE WEEKLY SUBCUTANEOUS?
     Route: 058
     Dates: start: 20250827

REACTIONS (3)
  - Hypersensitivity [None]
  - Product formulation issue [None]
  - Rubber sensitivity [None]
